FAERS Safety Report 23707939 (Version 1)
Quarter: 2024Q2

REPORT INFORMATION
  Report Type: Spontaneous
  Country: CA (occurrence: CA)
  Receive Date: 20240404
  Receipt Date: 20240404
  Transmission Date: 20240715
  Serious: Yes (Hospitalization)
  Sender: FDA-Public Use
  Company Number: CA-B.Braun Medical Inc.-2155231

PATIENT
  Age: 88 Year
  Sex: Male
  Weight: 61 kg

DRUGS (14)
  1. POTASSIUM CHLORIDE [Suspect]
     Active Substance: POTASSIUM CHLORIDE
     Indication: Hypokalaemia
     Route: 048
  2. ASPIRIN [Suspect]
     Active Substance: ASPIRIN
  3. MIDODRINE [Concomitant]
     Active Substance: MIDODRINE
  4. METHOTREXATE [Concomitant]
     Active Substance: METHOTREXATE
  5. FERROUS SULFATE ANHYDROUS [Concomitant]
     Active Substance: FERROUS SULFATE ANHYDROUS
  6. HYDROXYCHLOROQUINE [Concomitant]
     Active Substance: HYDROXYCHLOROQUINE
  7. GABAPENTIN [Concomitant]
     Active Substance: GABAPENTIN
  8. FOLIC ACID [Concomitant]
     Active Substance: FOLIC ACID
  9. DULOXETINE HYDROCHLORIDE [Concomitant]
     Active Substance: DULOXETINE HYDROCHLORIDE
  10. Dex-lansoprazole [Concomitant]
  11. Calcium carbonate with ?vitamin D [Concomitant]
  12. ATORVASTATIN CALCIUM [Concomitant]
     Active Substance: ATORVASTATIN CALCIUM
  13. AMIODARONE [Concomitant]
     Active Substance: AMIODARONE
  14. ACETAMINOPHEN [Concomitant]
     Active Substance: ACETAMINOPHEN

REACTIONS (4)
  - Oesophagitis [Recovered/Resolved]
  - Off label use [Recovered/Resolved]
  - Upper gastrointestinal haemorrhage [Recovered/Resolved]
  - Ulcer [Recovered/Resolved]
